FAERS Safety Report 21999078 (Version 2)
Quarter: 2023Q2

REPORT INFORMATION
  Report Type: Spontaneous
  Country: US (occurrence: US)
  Receive Date: 20230216
  Receipt Date: 20230620
  Transmission Date: 20230722
  Serious: No
  Sender: FDA-Public Use
  Company Number: US-SANOFI-01483840

PATIENT
  Age: 9 Month
  Sex: Female

DRUGS (2)
  1. CEREZYME [Suspect]
     Active Substance: IMIGLUCERASE
     Indication: Gaucher^s disease type II
     Dosage: UNK
     Dates: start: 20140806
  2. CEREZYME [Suspect]
     Active Substance: IMIGLUCERASE
     Dosage: UNK UNK, QW
     Dates: start: 20230120

REACTIONS (1)
  - Product use in unapproved indication [Unknown]

NARRATIVE: CASE EVENT DATE: 20140806
